FAERS Safety Report 11133199 (Version 1)
Quarter: 2015Q2

REPORT INFORMATION
  Report Type: Spontaneous
  Country: US (occurrence: US)
  Receive Date: 20150522
  Receipt Date: 20150522
  Transmission Date: 20150821
  Serious: Yes (Other)
  Sender: FDA-Public Use
  Company Number: US-GLAXOSMITHKLINE-US2015GSK070600

PATIENT
  Sex: Male

DRUGS (1)
  1. VENTOLIN HFA [Suspect]
     Active Substance: ALBUTEROL SULFATE
     Indication: PRODUCT USED FOR UNKNOWN INDICATION

REACTIONS (7)
  - Shoulder operation [Unknown]
  - Blood pressure abnormal [Unknown]
  - Road traffic accident [Unknown]
  - Chest pain [Unknown]
  - Limb discomfort [Unknown]
  - Joint injury [Not Recovered/Not Resolved]
  - Gout [Unknown]
